FAERS Safety Report 6855155-6 (Version None)
Quarter: 2010Q3

REPORT INFORMATION
  Report Type: 
  Country: None (occurrence: None)
  Receive Date: 20100717
  Receipt Date: 20081217
  Transmission Date: 20110219
  Serious: Yes (Other)
  Sender: FDA-Public Use
  Company Number: US-PFIZER INC-2007105631

PATIENT
  Sex: Female
  Weight: 67.6 kg

DRUGS (3)
  1. CHANTIX [Suspect]
     Indication: SMOKING CESSATION THERAPY
     Route: 048
     Dates: start: 20071201, end: 20080301
  2. ALLEGRA D 24 HOUR [Suspect]
  3. ASACOL [Concomitant]

REACTIONS (5)
  - ABNORMAL DREAMS [None]
  - HUNGER [None]
  - ILEOSTOMY [None]
  - INSOMNIA [None]
  - NAUSEA [None]
